FAERS Safety Report 5020918-9 (Version None)
Quarter: 2006Q2

REPORT INFORMATION
  Report Type: 
  Country: None (occurrence: None)
  Receive Date: 20060607
  Receipt Date: 20060607
  Transmission Date: 20061013
  Serious: Yes (Death)
  Sender: FDA-Public Use
  Company Number: None

PATIENT
  Age: 42 Year
  Sex: Male
  Weight: 115.2136 kg

DRUGS (5)
  1. QUETIAPINE FUMARATE [Suspect]
     Indication: PARANOIA
     Dosage: 300MG  TWICE DAILY  ORALLY  (DURATION:  A NUMBER OF YEARS (? EXACT))
     Route: 048
  2. SPIRONOLACTONE [Concomitant]
  3. FLUONASE [Concomitant]
  4. ASPIRIN [Concomitant]
  5. NORVASC [Concomitant]

REACTIONS (4)
  - DIABETIC KETOACIDOSIS [None]
  - LOSS OF CONSCIOUSNESS [None]
  - MULTI-ORGAN FAILURE [None]
  - OVERWEIGHT [None]
